FAERS Safety Report 7411633-2 (Version None)
Quarter: 2011Q2

REPORT INFORMATION
  Report Type: 
  Country: None (occurrence: None)
  Receive Date: 20110413
  Receipt Date: 20110331
  Transmission Date: 20111010
  Serious: Yes (Hospitalization, Other)
  Sender: FDA-Public Use
  Company Number: US-JNJFOC-20110305565

PATIENT
  Sex: Female
  Weight: 60.78 kg

DRUGS (7)
  1. FOLIC ACID [Concomitant]
     Route: 048
  2. POTASSIUM [Concomitant]
     Route: 048
  3. METOPROLOL TARTRATE [Concomitant]
     Indication: HYPERTENSION
     Route: 048
  4. DOXORUBICIN HCL [Suspect]
     Indication: FALLOPIAN TUBE CANCER
     Route: 042
  5. LIPITOR [Suspect]
     Indication: BLOOD CHOLESTEROL
     Route: 048
  6. LASIX [Concomitant]
     Indication: HYPERTENSION
     Route: 048
  7. DOXORUBICIN HCL [Suspect]
     Indication: OVARIAN CANCER
     Route: 042

REACTIONS (5)
  - HEPATIC ENZYME INCREASED [None]
  - HEPATIC FAILURE [None]
  - APHAGIA [None]
  - CHROMATURIA [None]
  - HEPATITIS [None]
